FAERS Safety Report 9045162 (Version 1)
Quarter: 2013Q1

REPORT INFORMATION
  Report Type: Spontaneous
  Country: US (occurrence: US)
  Receive Date: 20130130
  Receipt Date: 20130130
  Transmission Date: 20140127
  Serious: No
  Sender: FDA-Public Use
  Company Number: US-ASTRAZENECA-2013SE06023

PATIENT
  Age: 68 Year
  Sex: Male
  Weight: 49.9 kg

DRUGS (1)
  1. SYMBICORT PMDI [Suspect]
     Dosage: 320 MCG, TWO TIMES A DAY
     Route: 055
     Dates: start: 2011

REACTIONS (1)
  - Dyspnoea [Unknown]
